FAERS Safety Report 15348360 (Version 2)
Quarter: 2018Q3

REPORT INFORMATION
  Report Type: Spontaneous
  Country: US (occurrence: US)
  Receive Date: 20180904
  Receipt Date: 20180924
  Transmission Date: 20181010
  Serious: Yes (Other)
  Sender: FDA-Public Use
  Company Number: US-TAKEDA-2018TUS026075

PATIENT
  Sex: Male
  Weight: 55.34 kg

DRUGS (1)
  1. ENTYVIO [Suspect]
     Active Substance: VEDOLIZUMAB
     Indication: CROHN^S DISEASE
     Dosage: 300 MG, UNK
     Route: 042

REACTIONS (7)
  - Blood glucose abnormal [Unknown]
  - Blood bicarbonate decreased [Unknown]
  - Blood chloride increased [Unknown]
  - Anaphylactic reaction [Unknown]
  - Crohn^s disease [Unknown]
  - Rash [Unknown]
  - Hypokalaemia [Unknown]
